FAERS Safety Report 4622757-7 (Version None)
Quarter: 2005Q1

REPORT INFORMATION
  Report Type: 
  Country: None (occurrence: None)
  Receive Date: 20050329
  Receipt Date: 20050329
  Transmission Date: 20050727
  Serious: Yes (Other)
  Sender: FDA-Public Use
  Company Number: None

PATIENT
  Age: 77 Year
  Sex: Male

DRUGS (8)
  1. ACIPHEX [Suspect]
     Dosage: 1 TABLET DAILY
  2. SYNTHROID [Concomitant]
  3. ALLEGRA [Concomitant]
  4. PATANOL [Concomitant]
  5. VITAMIN E [Concomitant]
  6. CALCIUM GLUCONATE [Concomitant]
  7. GLUCOSAMINE [Concomitant]
  8. SEE IMAGE [Concomitant]

REACTIONS (2)
  - BRADYCARDIA [None]
  - LOSS OF CONSCIOUSNESS [None]
